FAERS Safety Report 7603056-8 (Version None)
Quarter: 2011Q3

REPORT INFORMATION
  Report Type: 
  Country: None (occurrence: None)
  Receive Date: 20110712
  Receipt Date: 20110704
  Transmission Date: 20111222
  Serious: Yes (Death, Other)
  Sender: FDA-Public Use
  Company Number: GB-AMGEN-GBRSP2011034239

PATIENT
  Age: 61 Year
  Sex: Male

DRUGS (5)
  1. LOSARTAN POTASSIUM [Concomitant]
     Indication: AMYLOIDOSIS
     Dosage: UNK
     Route: 048
  2. LANSOPRAZOLE [Concomitant]
     Dosage: 15 MG, 2X/DAY
     Route: 048
  3. PREDNISOLONE [Concomitant]
     Dosage: 6 MG, 1X/DAY
     Route: 048
  4. AMOXYCILLIN                        /00249601/ [Concomitant]
     Indication: RHEUMATOID ARTHRITIS
     Dosage: 750 MG, 1X/DAY
     Route: 048
  5. ENBREL [Suspect]
     Indication: RHEUMATOID ARTHRITIS
     Dosage: 25 MG, ONCE IN 2  WEEKS
     Route: 058
     Dates: start: 20031112

REACTIONS (2)
  - GASTRIC CANCER [None]
  - SEPSIS [None]
